FAERS Safety Report 23932536 (Version 1)
Quarter: 2024Q2

REPORT INFORMATION
  Report Type: Spontaneous
  Country: US (occurrence: US)
  Receive Date: 20240603
  Receipt Date: 20240603
  Transmission Date: 20240716
  Serious: Yes (Other)
  Sender: FDA-Public Use
  Company Number: US-MYLANLABS-2024M1048759

PATIENT
  Age: 52 Year
  Sex: Female

DRUGS (2)
  1. CISPLATIN [Suspect]
     Active Substance: CISPLATIN
     Indication: Cervix carcinoma
     Dosage: UNK, CYCLE, 4 CYCLES
     Route: 065
  2. ETOPOSIDE [Suspect]
     Active Substance: ETOPOSIDE
     Indication: Cervix carcinoma
     Dosage: UNK, CYCLE, 4 CYCLES
     Route: 065

REACTIONS (3)
  - RUNX1 gene mutation [Recovered/Resolved]
  - Acute myeloid leukaemia [Recovered/Resolved]
  - Off label use [Unknown]
